FAERS Safety Report 23421156 (Version 1)
Quarter: 2024Q1

REPORT INFORMATION
  Report Type: Spontaneous
  Country: US (occurrence: US)
  Receive Date: 20240119
  Receipt Date: 20240119
  Transmission Date: 20240409
  Serious: No
  Sender: FDA-Public Use
  Company Number: US-Merck Healthcare KGaA-2024002821

PATIENT
  Age: 57 Year
  Sex: Female
  Weight: 70 kg

DRUGS (1)
  1. MAVENCLAD [Suspect]
     Active Substance: CLADRIBINE
     Indication: Multiple sclerosis
     Dosage: YEAR ONE MONTH ONE THERAPY AT DOSE OF TWO TABLETS ON DAY 1 TO 2 AND ONE TABLET ON DAY 3 TO 5
     Route: 048
     Dates: start: 20231029, end: 20231102

REACTIONS (1)
  - Multiple sclerosis relapse [Unknown]
